FAERS Safety Report 9715685 (Version 3)
Quarter: 2013Q4

REPORT INFORMATION
  Report Type: Spontaneous
  Country: FR (occurrence: FR)
  Receive Date: 20131127
  Receipt Date: 20131224
  Transmission Date: 20140711
  Serious: Yes (Other)
  Sender: FDA-Public Use
  Company Number: FR-JNJFOC-20131113164

PATIENT
  Age: 70 Year
  Sex: Female

DRUGS (1)
  1. RISPERDAL CONSTA LP [Suspect]
     Indication: SCHIZOPHRENIA
     Dosage: SINCE ABOUT 1 YEAR-ONGOING
     Route: 030
     Dates: start: 2012

REACTIONS (6)
  - Nervous system disorder [Unknown]
  - Insomnia [Unknown]
  - Tremor [Unknown]
  - Depression [Unknown]
  - Musculoskeletal stiffness [Unknown]
  - Gastrointestinal pain [Unknown]
